FAERS Safety Report 13641108 (Version 1)
Quarter: 2017Q2

REPORT INFORMATION
  Report Type: Report from Study
  Country: None (occurrence: BR)
  Receive Date: 20170612
  Receipt Date: 20170612
  Transmission Date: 20170830
  Serious: Yes (Hospitalization, Other)
  Sender: FDA-Public Use
  Company Number: BR-ABBVIE-17K-020-1999452-00

PATIENT
  Age: 56 Year
  Sex: Female
  Weight: 56 kg

DRUGS (1)
  1. HUMIRA [Suspect]
     Active Substance: ADALIMUMAB
     Indication: RHEUMATOID ARTHRITIS
     Route: 058
     Dates: start: 20130103, end: 20170512

REACTIONS (22)
  - Upper limb fracture [Recovering/Resolving]
  - Depression [Recovered/Resolved]
  - Pleural effusion [Unknown]
  - Pleural calcification [Unknown]
  - Pleurisy [Recovered/Resolved]
  - Peripheral swelling [Recovering/Resolving]
  - Urinary tract infection [Recovered/Resolved]
  - Nausea [Recovering/Resolving]
  - Joint swelling [Recovering/Resolving]
  - Skin exfoliation [Recovering/Resolving]
  - Joint crepitation [Recovering/Resolving]
  - Decreased appetite [Recovering/Resolving]
  - Insomnia [Recovering/Resolving]
  - Wound [Recovering/Resolving]
  - Sensory disturbance [Recovering/Resolving]
  - Joint stiffness [Recovering/Resolving]
  - Tremor [Recovering/Resolving]
  - Asthenia [Recovering/Resolving]
  - Dry eye [Recovering/Resolving]
  - Foot deformity [Recovering/Resolving]
  - Arthralgia [Recovering/Resolving]
  - Limb mass [Recovering/Resolving]

NARRATIVE: CASE EVENT DATE: 201512
